FAERS Safety Report 4901835-9 (Version None)
Quarter: 2006Q1

REPORT INFORMATION
  Report Type: 
  Country: None (occurrence: None)
  Receive Date: 20060202
  Receipt Date: 20060202
  Transmission Date: 20060701
  Serious: Yes (Life-Threatening, Hospitalization, Disabling, Other)
  Sender: FDA-Public Use
  Company Number: None

PATIENT
  Sex: Female
  Weight: 81.6475 kg

DRUGS (3)
  1. ORTHO EVRA [Suspect]
     Indication: CONTRACEPTION
     Dosage: 1 PATCH 1 PATCH/WK TRANSDERMAL
     Route: 062
     Dates: end: 20051122
  2. ORTHO EVRA [Suspect]
     Indication: HEADACHE
     Dosage: 1 PATCH 1 PATCH/WK TRANSDERMAL
     Route: 062
     Dates: end: 20051122
  3. ORTHO EVRA [Suspect]
     Indication: MENORRHAGIA
     Dosage: 1 PATCH 1 PATCH/WK TRANSDERMAL
     Route: 062
     Dates: end: 20051122

REACTIONS (3)
  - COAGULOPATHY [None]
  - THROMBOSIS [None]
  - VISUAL DISTURBANCE [None]
